FAERS Safety Report 10668670 (Version 1)
Quarter: 2014Q4

REPORT INFORMATION
  Report Type: Spontaneous
  Country: US (occurrence: None)
  Receive Date: 20141217
  Receipt Date: 20141217
  Transmission Date: 20150529
  Serious: No
  Sender: FDA-Public Use
  Company Number: 2014CT000116

PATIENT
  Age: 48 Year
  Sex: Female
  Weight: 77.11 kg

DRUGS (6)
  1. LOSARTAN [Concomitant]
     Active Substance: LOSARTAN
  2. ABILIFY [Concomitant]
     Active Substance: ARIPIPRAZOLE
  3. LUNESTA [Concomitant]
     Active Substance: ESZOPICLONE
  4. KORLYM [Suspect]
     Active Substance: MIFEPRISTONE
     Indication: CUSHING^S SYNDROME
     Route: 048
     Dates: start: 20140724
  5. CYMBALTA [Concomitant]
     Active Substance: DULOXETINE HYDROCHLORIDE
  6. ASPIRIN. [Concomitant]
     Active Substance: ASPIRIN

REACTIONS (6)
  - Tremor [None]
  - Decreased appetite [None]
  - Dizziness [None]
  - Fatigue [None]
  - Blood pressure decreased [None]
  - Headache [None]

NARRATIVE: CASE EVENT DATE: 20140802
